FAERS Safety Report 20475607 (Version 1)
Quarter: 2022Q1

REPORT INFORMATION
  Report Type: Spontaneous
  Country: US (occurrence: None)
  Receive Date: 20220215
  Receipt Date: 20220215
  Transmission Date: 20220424
  Serious: Yes (Hospitalization)
  Sender: FDA-Public Use
  Company Number: None

PATIENT
  Sex: Male
  Weight: 108.9 kg

DRUGS (2)
  1. LENALIDOMIDE [Suspect]
     Active Substance: LENALIDOMIDE
     Dates: end: 20220122
  2. VELCADE [Suspect]
     Active Substance: BORTEZOMIB
     Dates: end: 20171214

REACTIONS (2)
  - Pathological fracture [None]
  - Transitional cell carcinoma urethra [None]

NARRATIVE: CASE EVENT DATE: 20220211
